FAERS Safety Report 10481830 (Version 1)
Quarter: 2014Q3

REPORT INFORMATION
  Report Type: Spontaneous
  Country: US (occurrence: US)
  Receive Date: 20140929
  Receipt Date: 20140929
  Transmission Date: 20150326
  Serious: Yes (Other)
  Sender: FDA-Public Use
  Company Number: PHEH2014US019210

PATIENT
  Age: 60 Year
  Sex: Female

DRUGS (1)
  1. ZOMETA [Suspect]
     Active Substance: ZOLEDRONIC ACID
     Indication: NEOPLASM MALIGNANT
     Dosage: 4 MG, QMO
     Route: 042

REACTIONS (4)
  - Hypertension [Unknown]
  - Breast cancer [Unknown]
  - Metastases to bone [Unknown]
  - Second primary malignancy [Unknown]

NARRATIVE: CASE EVENT DATE: 200406
